FAERS Safety Report 22343321 (Version 2)
Quarter: 2023Q2

REPORT INFORMATION
  Report Type: Report from Study
  Country: GB (occurrence: GB)
  Receive Date: 20230519
  Receipt Date: 20230622
  Transmission Date: 20230721
  Serious: Yes (Other)
  Sender: FDA-Public Use
  Company Number: GB-TAKEDA-2023TUS047530

PATIENT
  Sex: Female

DRUGS (2)
  1. VEDOLIZUMAB [Suspect]
     Active Substance: VEDOLIZUMAB
     Indication: Crohn^s disease
     Dosage: UNK
     Route: 042
  2. VEDOLIZUMAB [Suspect]
     Active Substance: VEDOLIZUMAB
     Indication: Crohn^s disease
     Dosage: 108 MILLIGRAM
     Route: 058
     Dates: start: 202305

REACTIONS (11)
  - Crohn^s disease [Unknown]
  - Breast cancer [Unknown]
  - Breast mass [Unknown]
  - Post-traumatic stress disorder [Unknown]
  - Anxiety [Recovered/Resolved]
  - Product administration error [Unknown]
  - Incorrect dose administered [Unknown]
  - Injection site pain [Unknown]
  - Headache [Unknown]
  - Back pain [Recovered/Resolved]
  - Arthralgia [Recovered/Resolved]
